FAERS Safety Report 5349383-9 (Version None)
Quarter: 2007Q2

REPORT INFORMATION
  Report Type: 
  Country: None (occurrence: None)
  Receive Date: 20070607
  Receipt Date: 20070531
  Transmission Date: 20071010
  Serious: No
  Sender: FDA-Public Use
  Company Number: US-ASTRAZENECA-2006UW07711

PATIENT
  Age: 41 Year
  Sex: Female
  Weight: 109.1 kg

DRUGS (4)
  1. SEROQUEL [Suspect]
     Indication: BIPOLAR DISORDER
     Route: 048
     Dates: start: 20020901, end: 20040201
  2. SEROQUEL [Suspect]
     Indication: DEPRESSION
     Route: 048
     Dates: start: 20020901, end: 20040201
  3. PROZAC [Concomitant]
     Dates: start: 19940101
  4. CYMBALTA [Concomitant]
     Dates: start: 20060101

REACTIONS (1)
  - DIABETES MELLITUS [None]
